FAERS Safety Report 8436967-4 (Version None)
Quarter: 2012Q2

REPORT INFORMATION
  Report Type: 
  Country: None (occurrence: None)
  Receive Date: 20120611
  Receipt Date: 20120611
  Transmission Date: 20120825
  Serious: Yes (Hospitalization, Other)
  Sender: FDA-Public Use
  Company Number: None

PATIENT
  Age: 52 Year
  Sex: Female
  Weight: 108.8633 kg

DRUGS (2)
  1. HYDROCHLOROTHIAZIDE [Suspect]
     Indication: HYPERTENSION
     Dosage: 25 MG 1 DAY PO
     Route: 048
     Dates: start: 20100101, end: 20120601
  2. HYDROCHLOROTHIAZIDE [Suspect]
     Indication: FLUID RETENTION
     Dosage: 25 MG 1 DAY PO
     Route: 048
     Dates: start: 20100101, end: 20120601

REACTIONS (6)
  - WHEEZING [None]
  - DYSPNOEA [None]
  - CHEST DISCOMFORT [None]
  - LETHARGY [None]
  - JOINT SWELLING [None]
  - OEDEMA PERIPHERAL [None]
